FAERS Safety Report 6610051-4 (Version None)
Quarter: 2010Q1

REPORT INFORMATION
  Report Type: 
  Country: None (occurrence: None)
  Receive Date: 20100219
  Receipt Date: 20100209
  Transmission Date: 20100710
  Serious: Yes (Hospitalization)
  Sender: FDA-Public Use
  Company Number: 230244J10BRA

PATIENT
  Age: 44 Year
  Sex: Female

DRUGS (5)
  1. REBIF [Suspect]
     Indication: RELAPSING-REMITTING MULTIPLE SCLEROSIS
     Dosage: 22 MCG, 3 IN 1 WEEKS
     Dates: start: 20020318
  2. PAMELOR [Concomitant]
  3. ACETAMINOPHEN [Concomitant]
  4. CLONAZEPAM [Concomitant]
  5. FLUOXETINE [Concomitant]

REACTIONS (1)
  - DIPLEGIA [None]
